FAERS Safety Report 24911948 (Version 2)
Quarter: 2025Q3

REPORT INFORMATION
  Report Type: Spontaneous
  Country: US (occurrence: US)
  Receive Date: 20250131
  Receipt Date: 20250928
  Transmission Date: 20251021
  Serious: Yes (Other)
  Sender: SANOFI AVENTIS
  Company Number: US-SA-2025SA025762

PATIENT
  Age: 58 Year
  Sex: Male

DRUGS (7)
  1. KEVZARA [Suspect]
     Active Substance: SARILUMAB
     Indication: Rheumatoid arthritis
     Dosage: 200 MG, QOW
     Route: 058
  2. FOLIC ACID [Concomitant]
     Active Substance: FOLIC ACID
  3. ALLOPURINOL SODIUM [Concomitant]
     Active Substance: ALLOPURINOL SODIUM
  4. AMLODIPINE BESYLATE [Concomitant]
     Active Substance: AMLODIPINE BESYLATE
  5. METHOTREXATE SODIUM [Concomitant]
     Active Substance: METHOTREXATE SODIUM
  6. ROSUVASTATIN CALCIUM [Concomitant]
     Active Substance: ROSUVASTATIN CALCIUM
  7. GLIPIZIDE [Concomitant]
     Active Substance: GLIPIZIDE

REACTIONS (10)
  - Hip arthroplasty [Unknown]
  - Knee arthroplasty [Unknown]
  - Blood electrolytes decreased [Unknown]
  - Spinal stenosis [Not Recovered/Not Resolved]
  - Dysstasia [Unknown]
  - Bladder dysfunction [Not Recovered/Not Resolved]
  - Cellulitis [Unknown]
  - Orchitis [Not Recovered/Not Resolved]
  - Testicular swelling [Not Recovered/Not Resolved]
  - Testis discomfort [Not Recovered/Not Resolved]

NARRATIVE: CASE EVENT DATE: 20080101
